FAERS Safety Report 9867310 (Version 1)
Quarter: 2014Q1

REPORT INFORMATION
  Report Type: Report from Study
  Country: FR (occurrence: FR)
  Receive Date: 20140204
  Receipt Date: 20140204
  Transmission Date: 20141002
  Serious: Yes (Hospitalization)
  Sender: FDA-Public Use
  Company Number: FR-ALEXION PHARMACEUTICALS INC.-A201304280

PATIENT
  Age: 46 Year
  Sex: Female

DRUGS (10)
  1. ECULIZUMAB [Suspect]
     Indication: HAEMOLYTIC URAEMIC SYNDROME
     Dosage: UNK MG, UNK
     Route: 042
     Dates: start: 20110826
  2. CORTANCYL [Concomitant]
     Dosage: UNK
     Route: 048
     Dates: start: 20110513
  3. LEVOTHYROXINE [Concomitant]
     Indication: HYPERTHYROIDISM
     Dosage: UNK
     Route: 048
     Dates: start: 20100517
  4. TAHOR [Concomitant]
     Indication: DYSLIPIDAEMIA
     Dosage: UNK
     Route: 048
     Dates: start: 20110627
  5. TARDYFERON B9 [Concomitant]
     Indication: IRON DEFICIENCY
     Dosage: UNK
     Route: 048
     Dates: start: 20120607
  6. CACIT D3 [Concomitant]
     Indication: CALCIUM DEFICIENCY
     Dosage: UNK
     Route: 048
     Dates: start: 20130602
  7. INEXIUM [Concomitant]
     Indication: ANTACID THERAPY
     Dosage: UNK
     Route: 048
     Dates: start: 20120607
  8. UVEDOSE [Concomitant]
     Dosage: UNK
     Route: 048
     Dates: start: 20120515
  9. ARANESP [Concomitant]
     Dosage: UNK
     Route: 048
     Dates: start: 20110520
  10. ALFACALCIDOL [Concomitant]
     Dosage: UNK
     Route: 048
     Dates: start: 20130602

REACTIONS (1)
  - Candida infection [Not Recovered/Not Resolved]
